FAERS Safety Report 14474181 (Version 1)
Quarter: 2018Q1

REPORT INFORMATION
  Report Type: Spontaneous
  Country: US (occurrence: US)
  Receive Date: 20180131
  Receipt Date: 20180131
  Transmission Date: 20180509
  Serious: Yes (Hospitalization)
  Sender: FDA-Public Use
  Company Number: None

PATIENT
  Age: 70 Year
  Sex: Male

DRUGS (1)
  1. ASPIRIN/CAFFEINE [Suspect]
     Active Substance: ASPIRIN\CAFFEINE
     Dates: start: 20171213, end: 20171213

REACTIONS (6)
  - Dyspnoea [None]
  - Muscular weakness [None]
  - Paraesthesia [None]
  - Gastric haemorrhage [None]
  - Dizziness postural [None]
  - Hypoaesthesia [None]

NARRATIVE: CASE EVENT DATE: 20171213
